FAERS Safety Report 22648762 (Version 1)
Quarter: 2023Q2

REPORT INFORMATION
  Report Type: Spontaneous
  Country: US (occurrence: None)
  Receive Date: 20230628
  Receipt Date: 20230628
  Transmission Date: 20230722
  Serious: No
  Sender: FDA-Public Use
  Company Number: US-ARIS GLOBAL-UWM202206-000021

PATIENT
  Age: 56 Year
  Sex: Female

DRUGS (7)
  1. LUCEMYRA [Suspect]
     Active Substance: LOFEXIDINE
     Indication: Product used for unknown indication
     Dates: start: 20220615
  2. LUCEMYRA [Suspect]
     Active Substance: LOFEXIDINE
     Dates: start: 20220616
  3. LUCEMYRA [Suspect]
     Active Substance: LOFEXIDINE
     Dates: start: 20220618
  4. LUCEMYRA [Suspect]
     Active Substance: LOFEXIDINE
     Dates: start: 20220619
  5. LUCEMYRA [Suspect]
     Active Substance: LOFEXIDINE
     Dates: start: 20220620
  6. LUCEMYRA [Suspect]
     Active Substance: LOFEXIDINE
     Dates: start: 20220620
  7. LUCEMYRA [Suspect]
     Active Substance: LOFEXIDINE
     Dates: start: 20220621

REACTIONS (5)
  - Fall [Unknown]
  - Superficial injury of eye [Unknown]
  - Feeling abnormal [Unknown]
  - Hypertension [Unknown]
  - Product dose omission issue [Unknown]
